FAERS Safety Report 8976214 (Version 1)
Quarter: 2012Q4

REPORT INFORMATION
  Report Type: 
  Country: BR (occurrence: BR)
  Receive Date: 20121220
  Receipt Date: 20121220
  Transmission Date: 20130627
  Serious: Yes (Hospitalization, Other)
  Sender: FDA-Public Use
  Company Number: PHHY2012BR116124

PATIENT
  Age: 70 Year
  Sex: Female

DRUGS (33)
  1. TRILEPTAL [Suspect]
     Indication: DEPRESSION
     Dosage: 300 mg, UNK
     Route: 048
     Dates: end: 2007
  2. TOFRANIL [Suspect]
     Indication: DEPRESSION
     Dosage: 1 DF, TID
     Route: 048
  3. TOFRANIL [Suspect]
     Dosage: 1 DF, TID
     Route: 048
     Dates: end: 201208
  4. LUDIOMIL [Suspect]
     Indication: DEPRESSION
     Dosage: 25 mg, UNK
     Route: 048
     Dates: end: 2009
  5. VALDOXAN [Suspect]
     Indication: DEPRESSION
     Dosage: 1 DF, BID
     Route: 048
  6. GLIMEPIRIDE [Suspect]
     Indication: DIABETES MELLITUS
     Dosage: 1 DF, BID
     Route: 048
  7. DOXYCYCLINE [Suspect]
     Indication: DEPRESSION
     Dosage: 1 DF at night
     Route: 048
  8. SERTRALINE HYDROCHLORIDE [Suspect]
     Indication: DEPRESSION
     Dosage: 50 mg, UNK
     Route: 048
  9. AMLODIPINE BESYLATE [Suspect]
     Indication: HYPERTENSION
     Route: 048
  10. TOPIRAMATE [Suspect]
     Indication: DEPRESSION
     Dosage: 50 mg, UNK
     Route: 048
     Dates: start: 2012
  11. RIVOTRIL [Suspect]
     Indication: SLEEP DISORDER
     Dosage: 4 DF at night
     Route: 048
  12. RESPICIL [Suspect]
     Dosage: 400 mg, UNK
     Route: 048
  13. SOCIAN [Suspect]
     Indication: DEPRESSION
     Dosage: 50 mg, UNK
     Route: 048
  14. TOPAMAX [Suspect]
     Indication: DEPRESSION
     Dosage: 1 DF, BID
     Route: 048
  15. DUSPATALIN [Suspect]
     Route: 048
  16. PRAZOL (LANSOPRAZOLE) [Suspect]
     Dosage: 1 DF, Daily
     Route: 048
  17. TOLVON [Suspect]
     Indication: DEPRESSION
     Dosage: 0.5 DF (Half tablet at night)
     Route: 048
  18. EXODUS [Suspect]
     Indication: DEPRESSION
     Route: 048
  19. LEVOID [Suspect]
     Route: 048
  20. ARFLEX [Suspect]
     Route: 048
  21. CEBRIN [Suspect]
     Dosage: 20 mg, UNK
     Route: 048
  22. REMERON [Suspect]
     Route: 048
  23. TOLREST [Suspect]
     Indication: DEPRESSION
     Route: 048
  24. ZETRON (BUPROPION HYDROCHLORIDE) [Suspect]
     Dosage: 105 mg, UNK
     Route: 048
     Dates: start: 2006
  25. DONAREN [Suspect]
     Indication: DEPRESSION
     Dosage: UNK
     Route: 048
     Dates: start: 2007
  26. NEUROTRYPT [Suspect]
     Indication: DEPRESSION
     Dosage: UNK
     Route: 048
     Dates: start: 2007
  27. BUSCOPAN [Suspect]
     Dosage: UNK
  28. CITTA [Suspect]
     Indication: DEPRESSION
     Dosage: 1 DF, Daily
     Route: 048
  29. NORVASC [Suspect]
     Dosage: UNK
     Route: 048
     Dates: end: 2010
  30. CYMBALTA [Suspect]
     Indication: DEPRESSION
     Dosage: 30 mg, UNK
     Route: 048
     Dates: start: 20101130
  31. SELOZOK [Suspect]
     Indication: HYPERTENSION
     Dosage: UNK
     Dates: start: 2010
  32. TRYPTANOL [Suspect]
     Indication: DEPRESSION
     Dosage: 1 DF, BID
     Route: 048
  33. TAMIRAM [Suspect]
     Indication: DEPRESSION
     Dosage: 1 DF, BID
     Route: 048
     Dates: start: 201205

REACTIONS (15)
  - Coronary artery occlusion [Recovered/Resolved]
  - Hypertension [Recovered/Resolved]
  - Blood viscosity increased [Recovered/Resolved]
  - Tachycardia [Recovered/Resolved]
  - Blood pressure inadequately controlled [Recovered/Resolved]
  - Growth retardation [Recovered/Resolved]
  - Weight increased [Not Recovered/Not Resolved]
  - Feeling abnormal [Recovered/Resolved]
  - Hypersensitivity [Recovered/Resolved]
  - Hyperhidrosis [Unknown]
  - Burning sensation [Recovered/Resolved]
  - Depression [Not Recovered/Not Resolved]
  - Urticaria [Recovered/Resolved]
  - Headache [Recovered/Resolved]
  - Drug ineffective [Unknown]
